FAERS Safety Report 12499379 (Version 1)
Quarter: 2016Q2

REPORT INFORMATION
  Report Type: Spontaneous
  Country: US (occurrence: None)
  Receive Date: 20160624
  Receipt Date: 20160624
  Transmission Date: 20160815
  Serious: Yes (Hospitalization, Other)
  Sender: FDA-Public Use
  Company Number: None

PATIENT
  Age: 60 Year
  Sex: Male
  Weight: 107 kg

DRUGS (1)
  1. DABIGATRAN, 150MG PO Q12H [Suspect]
     Active Substance: DABIGATRAN
     Indication: PULMONARY EMBOLISM
     Route: 048
     Dates: start: 20160419, end: 20160531

REACTIONS (1)
  - Pericardial effusion [None]

NARRATIVE: CASE EVENT DATE: 20160601
